FAERS Safety Report 4951020-X (Version None)
Quarter: 2006Q1

REPORT INFORMATION
  Report Type: 
  Country: None (occurrence: None)
  Receive Date: 20060315
  Receipt Date: 20060306
  Transmission Date: 20060701
  Serious: Yes (Hospitalization)
  Sender: FDA-Public Use
  Company Number: FRWYE321707JAN05

PATIENT
  Age: 65 Year
  Sex: Male

DRUGS (7)
  1. RAPAMUNE [Suspect]
     Indication: PROPHYLAXIS AGAINST TRANSPLANT REJECTION
     Dosage: 15MG 1X PER 1 DAY; ORAL ,  (SEE IMAGE)
     Route: 048
     Dates: start: 20030320, end: 20030321
  2. RAPAMUNE [Suspect]
     Indication: PROPHYLAXIS AGAINST TRANSPLANT REJECTION
     Dosage: 15MG 1X PER 1 DAY; ORAL ,  (SEE IMAGE)
     Route: 048
     Dates: start: 20030322, end: 20030328
  3. RAPAMUNE [Suspect]
     Indication: PROPHYLAXIS AGAINST TRANSPLANT REJECTION
     Dosage: 15MG 1X PER 1 DAY; ORAL ,  (SEE IMAGE)
     Route: 048
     Dates: start: 20030401, end: 20030417
  4. RAPAMUNE [Suspect]
     Indication: PROPHYLAXIS AGAINST TRANSPLANT REJECTION
     Dosage: 15MG 1X PER 1 DAY; ORAL ,  (SEE IMAGE)
     Route: 048
     Dates: start: 20030418, end: 20031103
  5. RAPAMUNE [Suspect]
     Indication: PROPHYLAXIS AGAINST TRANSPLANT REJECTION
     Dosage: 15MG 1X PER 1 DAY; ORAL ,  (SEE IMAGE)
     Route: 048
     Dates: start: 20031104, end: 20031227
  6. CORTANCYL (PREDNISONE) [Concomitant]
  7. CELLCEPT [Concomitant]

REACTIONS (12)
  - ARTERIAL BRUIT [None]
  - BLOOD ALBUMIN DECREASED [None]
  - BRONCHIAL DISORDER [None]
  - CRYPTOGENIC ORGANIZING PNEUMONIA [None]
  - HERPES VIRUS INFECTION [None]
  - LYMPH NODE CALCIFICATION [None]
  - LYMPHADENOPATHY MEDIASTINAL [None]
  - MITRAL VALVE INCOMPETENCE [None]
  - MORAXELLA INFECTION [None]
  - STREPTOCOCCAL INFECTION [None]
  - SUPERINFECTION [None]
  - VASCULAR CALCIFICATION [None]
